FAERS Safety Report 17951513 (Version 1)
Quarter: 2020Q2

REPORT INFORMATION
  Report Type: Spontaneous
  Country: CN (occurrence: CN)
  Receive Date: 20200626
  Receipt Date: 20200626
  Transmission Date: 20200714
  Serious: Yes (Death, Other)
  Sender: FDA-Public Use
  Company Number: CN-SA-2020SA163634

PATIENT

DRUGS (24)
  1. MEROPENEM. [Suspect]
     Active Substance: MEROPENEM
     Indication: PNEUMONIA
  2. MEROPENEM. [Suspect]
     Active Substance: MEROPENEM
     Indication: TYPHOID FEVER
  3. ANTI-THYMOCYTE GLOBULIN (RABBIT) NOS [Suspect]
     Active Substance: LAPINE T-LYMPHOCYTE IMMUNE GLOBULIN
     Indication: PREMEDICATION
     Dosage: 1.5 MG/KG, QD, 5D BEFORE TRANSPLANTATION
  4. METHOTREXATE. [Suspect]
     Active Substance: METHOTREXATE
     Indication: PROPHYLAXIS AGAINST GRAFT VERSUS HOST DISEASE
     Dosage: 15 MG/M2; 1 D AFTER TRANSPLANTATION, INFUSION
  5. TEICOPLANIN [Suspect]
     Active Substance: TEICOPLANIN
     Indication: PSEUDOMONAS INFECTION
  6. TEICOPLANIN [Suspect]
     Active Substance: TEICOPLANIN
     Indication: PNEUMONIA
  7. PIPERACILLIN SODIUM/TAZOBACTAM SODIUM [Suspect]
     Active Substance: PIPERACILLIN SODIUM\TAZOBACTAM SODIUM
     Indication: TYPHOID FEVER
  8. IMIPENEM [Suspect]
     Active Substance: IMIPENEM
     Indication: PNEUMONIA
  9. G-CSF [Concomitant]
     Active Substance: GRANULOCYTE COLONY-STIMULATING FACTOR NOS
     Dosage: 5-10 MG/KG
     Route: 058
  10. ANTI-THYMOCYTE GLOBULIN (RABBIT) NOS [Suspect]
     Active Substance: LAPINE T-LYMPHOCYTE IMMUNE GLOBULIN
     Dosage: 2.5 MG/KG, QD, 4 TO 3D BEFORE TRANSPLANTATION
  11. ANTI-THYMOCYTE GLOBULIN (RABBIT) NOS [Suspect]
     Active Substance: LAPINE T-LYMPHOCYTE IMMUNE GLOBULIN
     Dosage: 3.5 MG/KG, QD, 2D BEFORE TRANSPLANTATION
  12. BUSULFAN. [Suspect]
     Active Substance: BUSULFAN
     Indication: PREMEDICATION
     Dosage: 0.8 MG/KG, Q6H  10 TO 8D BEFORE TRANSPLANTATION
  13. TEICOPLANIN [Suspect]
     Active Substance: TEICOPLANIN
     Indication: TYPHOID FEVER
  14. MEROPENEM. [Suspect]
     Active Substance: MEROPENEM
     Indication: PSEUDOMONAS INFECTION
  15. CICLOSPORIN A [Suspect]
     Active Substance: CYCLOSPORINE
     Indication: PROPHYLAXIS AGAINST GRAFT VERSUS HOST DISEASE
     Dosage: 2 MG/KG, Q12H, STARTING 10D BEFORE TRANSPLANTATION
  16. PIPERACILLIN SODIUM/TAZOBACTAM SODIUM [Suspect]
     Active Substance: PIPERACILLIN SODIUM\TAZOBACTAM SODIUM
     Indication: PNEUMONIA
  17. IMIPENEM [Suspect]
     Active Substance: IMIPENEM
     Indication: PSEUDOMONAS INFECTION
  18. CARMUSTINE. [Suspect]
     Active Substance: CARMUSTINE
     Indication: PREMEDICATION
     Dosage: 250 MG, QD, 7 D BEFORE TRANSPLANTATION
  19. MYCOPHENOLATE MOFETIL. [Suspect]
     Active Substance: MYCOPHENOLATE MOFETIL
     Indication: PROPHYLAXIS AGAINST GRAFT VERSUS HOST DISEASE
     Dosage: 500 MG, Q12H; STARTING 10D BEFORE TRANSPLANTATION
  20. PIPERACILLIN SODIUM/TAZOBACTAM SODIUM [Suspect]
     Active Substance: PIPERACILLIN SODIUM\TAZOBACTAM SODIUM
     Indication: PSEUDOMONAS INFECTION
  21. CYCLOPHOSPHAMIDE. [Suspect]
     Active Substance: CYCLOPHOSPHAMIDE
     Indication: PREMEDICATION
     Dosage: 50 MG/KG, QD
  22. METHOTREXATE. [Suspect]
     Active Substance: METHOTREXATE
     Dosage: 10 MG/M2; ON THE 3, 6 AND 11D AFTER TRANSPLANTATION, INFUSION
  23. IMIPENEM [Suspect]
     Active Substance: IMIPENEM
     Indication: TYPHOID FEVER
  24. CYTARABINE. [Suspect]
     Active Substance: CYTARABINE
     Indication: PREMEDICATION
     Dosage: 4 G/M2, QD

REACTIONS (10)
  - Septic shock [Fatal]
  - Pneumonia [Unknown]
  - Cytomegalovirus infection [Unknown]
  - Cystitis haemorrhagic [Unknown]
  - Pustule [Unknown]
  - Typhoid fever [Unknown]
  - Off label use [Unknown]
  - Pseudomonas infection [Unknown]
  - Epstein-Barr virus infection [Unknown]
  - Drug ineffective [Unknown]
